FAERS Safety Report 8303501-9 (Version None)
Quarter: 2012Q2

REPORT INFORMATION
  Report Type: 
  Country: None (occurrence: None)
  Receive Date: 20120418
  Receipt Date: 20120413
  Transmission Date: 20120825
  Serious: Yes (Hospitalization, Other)
  Sender: FDA-Public Use
  Company Number: 2010SP045138

PATIENT
  Age: 23 Year
  Sex: Female
  Weight: 97.5234 kg

DRUGS (3)
  1. REGLAN [Suspect]
     Indication: IRRITABLE BOWEL SYNDROME
     Dates: start: 20051005, end: 20051007
  2. NUVARING [Suspect]
     Indication: CONTRACEPTION
     Dates: start: 20060201
  3. NUVARING [Suspect]
     Indication: CONTRACEPTION
     Dates: start: 20040101, end: 20070110

REACTIONS (39)
  - ABDOMINAL PAIN UPPER [None]
  - PROTHROMBIN TIME PROLONGED [None]
  - ABDOMINAL MASS [None]
  - RECTAL POLYP [None]
  - VAGINITIS BACTERIAL [None]
  - DYSMENORRHOEA [None]
  - HAEMOPTYSIS [None]
  - LUNG INFILTRATION [None]
  - ALANINE AMINOTRANSFERASE INCREASED [None]
  - SIMPLEX VIRUS TEST POSITIVE [None]
  - COUGH [None]
  - PNEUMONIA [None]
  - PYREXIA [None]
  - INFLAMMATORY BOWEL DISEASE [None]
  - ENDOMETRIAL HYPERPLASIA [None]
  - SPEECH DISORDER [None]
  - DYSTONIA [None]
  - OVARIAN CYST [None]
  - DRUG HYPERSENSITIVITY [None]
  - HAEMATOCHEZIA [None]
  - MUSCULOSKELETAL CHEST PAIN [None]
  - ASPARTATE AMINOTRANSFERASE INCREASED [None]
  - EXTRAPYRAMIDAL DISORDER [None]
  - LUNG NEOPLASM [None]
  - ABDOMINAL PAIN [None]
  - MUSCLE SPASMS [None]
  - BAND NEUTROPHIL COUNT INCREASED [None]
  - THROMBOSIS [None]
  - PROTEIN S DEFICIENCY [None]
  - GOITRE [None]
  - DEEP VEIN THROMBOSIS [None]
  - PULMONARY EMBOLISM [None]
  - URINARY TRACT INFECTION [None]
  - BLOOD ALBUMIN DECREASED [None]
  - LIPASE INCREASED [None]
  - PULMONARY INFARCTION [None]
  - THYROID NEOPLASM [None]
  - MENORRHAGIA [None]
  - UTERINE POLYP [None]
